FAERS Safety Report 7883934-5 (Version None)
Quarter: 2011Q4

REPORT INFORMATION
  Report Type: 
  Country: None (occurrence: None)
  Receive Date: 20111102
  Receipt Date: 20111025
  Transmission Date: 20120403
  Serious: Yes (Other)
  Sender: FDA-Public Use
  Company Number: JP-JNJFOC-20111010847

PATIENT

DRUGS (4)
  1. RISPERDAL [Concomitant]
     Indication: SCHIZOPHRENIA
     Route: 048
  2. INVEGA [Suspect]
     Indication: SCHIZOPHRENIA
     Route: 048
     Dates: start: 20110601
  3. INVEGA [Suspect]
     Route: 048
  4. INVEGA [Suspect]
     Route: 048
     Dates: start: 20110901

REACTIONS (4)
  - HALLUCINATION [None]
  - DELUSION [None]
  - AKATHISIA [None]
  - SOLILOQUY [None]
